FAERS Safety Report 7303862-3 (Version None)
Quarter: 2011Q1

REPORT INFORMATION
  Report Type: 
  Country: None (occurrence: None)
  Receive Date: 20110221
  Receipt Date: 20110216
  Transmission Date: 20110831
  Serious: Yes (Hospitalization)
  Sender: FDA-Public Use
  Company Number: A0914336A

PATIENT
  Sex: Female

DRUGS (1)
  1. COREG [Suspect]
     Dosage: 12.5MG UNKNOWN
     Route: 065
     Dates: start: 20091220

REACTIONS (1)
  - MYOCARDIAL INFARCTION [None]
